FAERS Safety Report 24990901 (Version 1)
Quarter: 2025Q1

REPORT INFORMATION
  Report Type: Spontaneous
  Country: US (occurrence: US)
  Receive Date: 20250220
  Receipt Date: 20250220
  Transmission Date: 20250408
  Serious: Yes (Hospitalization)
  Sender: PFIZER
  Company Number: US-PFIZER INC-PV202500018324

PATIENT
  Age: 74 Year
  Sex: Female

DRUGS (1)
  1. SOMAVERT [Suspect]
     Active Substance: PEGVISOMANT
     Indication: Acromegaly
     Dosage: 30 MG, DAILY
     Route: 058

REACTIONS (2)
  - Respiratory tract infection [Unknown]
  - Viral infection [Unknown]

NARRATIVE: CASE EVENT DATE: 20240101
